FAERS Safety Report 15351182 (Version 10)
Quarter: 2022Q4

REPORT INFORMATION
  Report Type: Report from Study
  Country: US (occurrence: US)
  Receive Date: 20180905
  Receipt Date: 20221215
  Transmission Date: 20230113
  Serious: Yes (Hospitalization, Other)
  Sender: FDA-Public Use
  Company Number: US-PFIZER INC-2018358017

PATIENT
  Age: 71 Year
  Sex: Male
  Weight: 96 kg

DRUGS (3)
  1. LYRICA [Suspect]
     Active Substance: PREGABALIN
     Indication: Polyneuropathy
     Dosage: 150 MILLIGRAM, TID (150 MG, 3X/DAY )
     Route: 048
  2. LYRICA [Suspect]
     Active Substance: PREGABALIN
     Dosage: 1 DOSAGE FORM, BID (TAKE 1 CAPSULE BY MOUTH IN THE MORNING AND 1 CAPSULE IN THE EVENING)
     Route: 065
  3. ATORVASTATIN [Suspect]
     Active Substance: ATORVASTATIN
     Indication: Product used for unknown indication
     Dosage: UNK
     Route: 065

REACTIONS (15)
  - COVID-19 [Unknown]
  - Weight decreased [Unknown]
  - Choking [Unknown]
  - Upper respiratory tract infection [Recovering/Resolving]
  - Dry throat [Unknown]
  - Cough [Recovering/Resolving]
  - Malaise [Unknown]
  - Dyspnoea [Not Recovered/Not Resolved]
  - Dry mouth [Unknown]
  - Hypersensitivity [Unknown]
  - Muscle spasms [Unknown]
  - Pain [Unknown]
  - Therapeutic product effect incomplete [Unknown]
  - Treatment failure [Unknown]
  - Off label use [Unknown]

NARRATIVE: CASE EVENT DATE: 20191101
